FAERS Safety Report 4515289-8 (Version None)
Quarter: 2004Q4

REPORT INFORMATION
  Report Type: 
  Country: None (occurrence: None)
  Receive Date: 20041126
  Receipt Date: 20041112
  Transmission Date: 20050328
  Serious: Yes (Hospitalization)
  Sender: FDA-Public Use
  Company Number: EMR64300001-13

PATIENT
  Age: 68 Year
  Sex: Female

DRUGS (1)
  1. NIASPAN [Suspect]
     Indication: DYSLIPIDAEMIA
     Dosage: 1500 MG QD PO
     Route: 048
     Dates: start: 20040825, end: 20040919

REACTIONS (3)
  - ATRIAL FIBRILLATION [None]
  - CHEST PAIN [None]
  - THYROID DISORDER [None]
